FAERS Safety Report 9196564 (Version 2)
Quarter: 2013Q2

REPORT INFORMATION
  Report Type: Spontaneous
  Country: DE (occurrence: DE)
  Receive Date: 20130328
  Receipt Date: 20130501
  Transmission Date: 20140414
  Serious: Yes (Hospitalization, Other)
  Sender: FDA-Public Use
  Company Number: DE-UCBSA-081428

PATIENT
  Age: 16 Year
  Sex: Female
  Weight: 55 kg

DRUGS (2)
  1. KEPPRA [Suspect]
     Route: 048
     Dates: end: 20130316
  2. KEPPRA [Suspect]
     Dosage: UNKNOWN QUANTITY
     Route: 048
     Dates: start: 20130317, end: 20130317

REACTIONS (1)
  - Accidental exposure to product [Recovered/Resolved]
